APPROVED DRUG PRODUCT: METHIMAZOLE
Active Ingredient: METHIMAZOLE
Strength: 20MG
Dosage Form/Route: TABLET;ORAL
Application: A040350 | Product #003
Applicant: MYLAN PHARMACEUTICALS INC
Approved: Jun 7, 2001 | RLD: No | RS: No | Type: DISCN